FAERS Safety Report 5141557-5 (Version None)
Quarter: 2006Q4

REPORT INFORMATION
  Report Type: 
  Country: None (occurrence: None)
  Receive Date: 20061101
  Receipt Date: 20061030
  Transmission Date: 20070319
  Serious: Yes (Hospitalization)
  Sender: FDA-Public Use
  Company Number: FR-BRISTOL-MYERS SQUIBB COMPANY-13560123

PATIENT
  Age: 81 Year
  Sex: Female

DRUGS (6)
  1. MUCOMYST [Suspect]
     Route: 048
     Dates: start: 20060824, end: 20060826
  2. XENETIX [Suspect]
     Route: 042
     Dates: start: 20060824, end: 20060824
  3. ATACAND [Suspect]
     Route: 048
     Dates: start: 20060730, end: 20060824
  4. LASIX [Suspect]
     Route: 048
     Dates: start: 20060814, end: 20060828
  5. DEROXAT [Suspect]
     Route: 048
     Dates: start: 20060727, end: 20060828
  6. CETIRIZINE HCL [Concomitant]

REACTIONS (1)
  - RASH [None]
